FAERS Safety Report 6925843-1 (Version None)
Quarter: 2010Q3

REPORT INFORMATION
  Report Type: 
  Country: None (occurrence: None)
  Receive Date: 20100816
  Receipt Date: 20100809
  Transmission Date: 20110219
  Serious: Yes (Other)
  Sender: FDA-Public Use
  Company Number: CHPA2010US12781

PATIENT
  Age: 56 Year
  Sex: Female

DRUGS (2)
  1. PRIVATE LABEL (NCH) [Suspect]
     Indication: SMOKING CESSATION THERAPY
     Dosage: 21 MG, QD
     Route: 062
     Dates: start: 20100806, end: 20100808
  2. LEXAPRO [Concomitant]

REACTIONS (12)
  - ABASIA [None]
  - AMNESIA [None]
  - ASTHENIA [None]
  - CONFUSIONAL STATE [None]
  - DIZZINESS [None]
  - FALL [None]
  - HALLUCINATION [None]
  - INAPPROPRIATE AFFECT [None]
  - IRRITABILITY [None]
  - NAUSEA [None]
  - NERVOUSNESS [None]
  - PAIN [None]
